FAERS Safety Report 12427271 (Version 1)
Quarter: 2016Q2

REPORT INFORMATION
  Report Type: Other
  Country: US (occurrence: TW)
  Receive Date: 20160602
  Receipt Date: 20160602
  Transmission Date: 20160815
  Serious: Yes (Hospitalization)
  Sender: FDA-Public Use
  Company Number: TW-BRECKENRIDGE PHARMACEUTICAL, INC.-1053070

PATIENT
  Age: 85 Year
  Sex: Male

DRUGS (2)
  1. BUPROPION HYDROCHLORIDE XL [Concomitant]
     Active Substance: BUPROPION HYDROCHLORIDE
  2. DULOXETINE. [Suspect]
     Active Substance: DULOXETINE
     Indication: DEPRESSION

REACTIONS (3)
  - Drug interaction [Recovered/Resolved]
  - Hallucinations, mixed [None]
  - Disorientation [None]
